FAERS Safety Report 16631783 (Version 1)
Quarter: 2019Q3

REPORT INFORMATION
  Report Type: Spontaneous
  Country: US (occurrence: US)
  Receive Date: 20190725
  Receipt Date: 20190725
  Transmission Date: 20191004
  Serious: No
  Sender: FDA-Public Use
  Company Number: US-ABBVIE-18P-163-2464749-00

PATIENT
  Sex: Female
  Weight: 105.33 kg

DRUGS (5)
  1. SYNTHROID [Suspect]
     Active Substance: LEVOTHYROXINE SODIUM
     Indication: HYPOTHYROIDISM
     Route: 048
     Dates: start: 2015, end: 2017
  2. SYNTHROID [Suspect]
     Active Substance: LEVOTHYROXINE SODIUM
     Route: 048
     Dates: start: 2017, end: 20180814
  3. SERTRALINE [Concomitant]
     Active Substance: SERTRALINE HYDROCHLORIDE
     Indication: DEPRESSION
  4. SYNTHROID [Suspect]
     Active Substance: LEVOTHYROXINE SODIUM
     Route: 048
     Dates: start: 2017, end: 2017
  5. SYNTHROID [Suspect]
     Active Substance: LEVOTHYROXINE SODIUM
     Route: 048
     Dates: start: 20180814

REACTIONS (18)
  - Expired product administered [Not Recovered/Not Resolved]
  - Mood swings [Recovering/Resolving]
  - Depression [Recovering/Resolving]
  - Weight decreased [Recovered/Resolved]
  - Blood thyroid stimulating hormone increased [Unknown]
  - Alopecia [Recovering/Resolving]
  - Arthralgia [Recovering/Resolving]
  - Fatigue [Recovered/Resolved]
  - Asthenia [Recovering/Resolving]
  - Fluid retention [Recovering/Resolving]
  - Stress [Recovered/Resolved]
  - Weight increased [Recovered/Resolved]
  - Limb discomfort [Recovering/Resolving]
  - Neck pain [Recovered/Resolved]
  - Dyspepsia [Recovered/Resolved]
  - Palpitations [Recovered/Resolved]
  - Weight increased [Not Recovered/Not Resolved]
  - Food craving [Recovering/Resolving]

NARRATIVE: CASE EVENT DATE: 2017
